FAERS Safety Report 6113558-1 (Version None)
Quarter: 2009Q1

REPORT INFORMATION
  Report Type: 
  Country: None (occurrence: None)
  Receive Date: 20090312
  Receipt Date: 20090304
  Transmission Date: 20090719
  Serious: Yes (Hospitalization, Other)
  Sender: FDA-Public Use
  Company Number: US-BAYER-200914688NA

PATIENT
  Age: 40 Year
  Sex: Female
  Weight: 66 kg

DRUGS (3)
  1. MIRENA [Suspect]
     Indication: CONTRACEPTION
     Route: 015
     Dates: start: 20081201, end: 20090220
  2. MIRENA [Suspect]
     Route: 015
     Dates: start: 20081201, end: 20081201
  3. ANTIBIOTICS [Concomitant]
     Indication: PELVIC PAIN

REACTIONS (3)
  - COMPLICATION OF DEVICE INSERTION [None]
  - NAUSEA [None]
  - PELVIC PAIN [None]
